FAERS Safety Report 9473823 (Version 2)
Quarter: 2013Q3

REPORT INFORMATION
  Report Type: Spontaneous
  Country: US (occurrence: US)
  Receive Date: 20130823
  Receipt Date: 20130823
  Transmission Date: 20140515
  Serious: No
  Sender: FDA-Public Use
  Company Number: US-BRISTOL-MYERS SQUIBB COMPANY-17026212

PATIENT
  Sex: Male

DRUGS (1)
  1. SPRYCEL [Suspect]
     Dosage: STARTED WITH 100MG DOSE AND REDUCED TO 50MG.?80MG: LOT NO-1E6048D,1J6043B.  EXP DT:MAY2014,SEP2012.

REACTIONS (1)
  - Dyspnoea exertional [Unknown]
